FAERS Safety Report 8142261-1 (Version None)
Quarter: 2012Q1

REPORT INFORMATION
  Report Type: 
  Country: None (occurrence: None)
  Receive Date: 20120216
  Receipt Date: 20120213
  Transmission Date: 20120608
  Serious: Yes (Death)
  Sender: FDA-Public Use
  Company Number: CA-B.I. PHARMACEUTICALS,INC./RIDGEFIELD-2012-CN-00238CN

PATIENT
  Sex: Female
  Weight: 66 kg

DRUGS (1)
  1. MIRAPEX [Suspect]
     Route: 065

REACTIONS (2)
  - PATHOLOGICAL GAMBLING [None]
  - COMPLETED SUICIDE [None]
